FAERS Safety Report 11875886 (Version 2)
Quarter: 2016Q1

REPORT INFORMATION
  Report Type: Spontaneous
  Country: JP (occurrence: JP)
  Receive Date: 20151229
  Receipt Date: 20160215
  Transmission Date: 20160526
  Serious: Yes (Other)
  Sender: FDA-Public Use
  Company Number: JP-BAYER-2015-492701

PATIENT
  Age: 36 Year
  Sex: Female

DRUGS (6)
  1. MEIACT [Concomitant]
     Active Substance: CEFDITOREN PIVOXIL
     Dosage: DAILY DOSE 300 MG
     Route: 048
     Dates: start: 20151208
  2. MUCOSTA [Concomitant]
     Active Substance: REBAMIPIDE
     Dosage: DAILY DOSE 300 MG
     Route: 048
     Dates: start: 20151208
  3. AVELOX [Suspect]
     Active Substance: MOXIFLOXACIN HYDROCHLORIDE
     Indication: MYCOPLASMA INFECTION
     Dosage: 400 MG, QD
     Route: 048
     Dates: start: 20151217, end: 20151217
  4. PREDNISOLONE. [Concomitant]
     Active Substance: PREDNISOLONE
     Dosage: DAILY DOSE 30 MG
     Dates: start: 20151208
  5. BAKUMONDOUTO [Concomitant]
     Active Substance: HERBALS
     Dosage: DAILY DOSE 9 G
     Route: 048
     Dates: start: 20151208
  6. KLARICID [Concomitant]
     Active Substance: CLARITHROMYCIN
     Dosage: DAILY DOSE 400 MG
     Route: 048
     Dates: start: 20151214

REACTIONS (6)
  - Erythema of eyelid [None]
  - Nausea [None]
  - Hemianaesthesia [Recovering/Resolving]
  - Hemianaesthesia [None]
  - Eyelid oedema [Recovering/Resolving]
  - Facial pain [Recovering/Resolving]

NARRATIVE: CASE EVENT DATE: 20151217
